FAERS Safety Report 6911319-4 (Version None)
Quarter: 2010Q3

REPORT INFORMATION
  Report Type: 
  Country: None (occurrence: None)
  Receive Date: 20100806
  Receipt Date: 20100729
  Transmission Date: 20110219
  Serious: Yes (Other)
  Sender: FDA-Public Use
  Company Number: US-JNJFOC-20100800736

PATIENT
  Sex: Female
  Weight: 72.12 kg

DRUGS (11)
  1. DURAGESIC-100 [Suspect]
     Indication: BACK PAIN
     Route: 062
  2. DURAGESIC-100 [Suspect]
     Route: 062
  3. DURAGESIC-100 [Suspect]
     Route: 062
  4. CRESTOR [Suspect]
     Indication: ARTERIOSCLEROSIS
     Dosage: EVERY OTHER DAY
     Route: 048
  5. HYDROCODONE BITARTRATE [Concomitant]
     Indication: PAIN
     Dosage: AS NEEDED
     Route: 048
  6. ACETAMINOPHEN [Concomitant]
     Indication: PAIN
     Dosage: AS NEEDED
     Route: 048
  7. LEVOTHYROXINE [Concomitant]
     Indication: THYROID DISORDER
     Route: 048
  8. MELOXICAM [Concomitant]
     Indication: ARTHRITIS
     Route: 048
  9. VITAMIN D [Concomitant]
     Indication: VITAMIN SUPPLEMENTATION
     Route: 048
  10. CLIDINIUM [Concomitant]
     Indication: NEUROPATHY PERIPHERAL
     Dosage: AS NEEDED
     Route: 048
  11. CHLORDIAZEPOXIDE [Concomitant]
     Indication: NEUROPATHY PERIPHERAL
     Dosage: AS NEEDED
     Route: 048

REACTIONS (5)
  - ARTERIOSCLEROSIS [None]
  - BREAKTHROUGH PAIN [None]
  - GASTROOESOPHAGEAL REFLUX DISEASE [None]
  - HEADACHE [None]
  - WRONG TECHNIQUE IN DRUG USAGE PROCESS [None]
